FAERS Safety Report 4337674-X (Version None)
Quarter: 2004Q2

REPORT INFORMATION
  Report Type: 
  Country: None (occurrence: None)
  Receive Date: 20040407
  Receipt Date: 20040324
  Transmission Date: 20050107
  Serious: Yes (Life-Threatening)
  Sender: FDA-Public Use
  Company Number: NO-JNJFOC-20040305508

PATIENT
  Age: 69 Year
  Sex: Female

DRUGS (2)
  1. REMICADE [Suspect]
     Indication: SPONDYLITIS
     Dosage: 400 MG , INTRAVENOUS
     Route: 042
     Dates: start: 20030501, end: 20040304
  2. ARCOXIA (ALL OTEHR THERAPEUTIC PRODUCTS) [Concomitant]

REACTIONS (4)
  - ANGIONEUROTIC OEDEMA [None]
  - DIZZINESS [None]
  - INFUSION RELATED REACTION [None]
  - NAUSEA [None]
